FAERS Safety Report 13327112 (Version 1)
Quarter: 2017Q1

REPORT INFORMATION
  Report Type: Spontaneous
  Country: US (occurrence: US)
  Receive Date: 20170313
  Receipt Date: 20170313
  Transmission Date: 20170428
  Serious: Yes (Other)
  Sender: FDA-Public Use
  Company Number: US-ROCHE-1904739

PATIENT
  Age: 6 Year
  Sex: Male
  Weight: 54 kg

DRUGS (1)
  1. TAMIFLU [Suspect]
     Active Substance: OSELTAMIVIR PHOSPHATE
     Indication: INFLUENZA
     Dosage: 6MG/ML ;ONGOING: NO
     Route: 065
     Dates: start: 20170307, end: 20170307

REACTIONS (4)
  - Hypersensitivity [Unknown]
  - Delirium [Unknown]
  - Sleep terror [Unknown]
  - Screaming [Unknown]

NARRATIVE: CASE EVENT DATE: 20170307
